FAERS Safety Report 9619248 (Version 2)
Quarter: 2013Q4

REPORT INFORMATION
  Report Type: Spontaneous
  Country: SE (occurrence: SE)
  Receive Date: 20131014
  Receipt Date: 20131017
  Transmission Date: 20140711
  Serious: Yes (Hospitalization, Other)
  Sender: FDA-Public Use
  Company Number: SE-ELI_LILLY_AND_COMPANY-SE201310001698

PATIENT
  Age: 90 Year
  Sex: Male

DRUGS (1)
  1. FONTEX [Suspect]
     Indication: PRODUCT USED FOR UNKNOWN INDICATION
     Dosage: 10 MG, QD
     Route: 048
     Dates: end: 20130420

REACTIONS (4)
  - Chest pain [Unknown]
  - Dyspnoea [Unknown]
  - Confusional state [Unknown]
  - Tremor [Unknown]
